FAERS Safety Report 4307202-3 (Version None)
Quarter: 2004Q1

REPORT INFORMATION
  Report Type: 
  Country: None (occurrence: None)
  Receive Date: 20040225
  Receipt Date: 20040213
  Transmission Date: 20041129
  Serious: No
  Sender: FDA-Public Use
  Company Number: 2004UW02650

PATIENT
  Age: 84 Year
  Sex: Female
  Weight: 58.0604 kg

DRUGS (5)
  1. IRESSA [Suspect]
     Indication: NON-SMALL CELL LUNG CANCER
     Dosage: 250 MG PO
     Route: 048
     Dates: start: 20040210
  2. DYAZIDE [Concomitant]
  3. PAIN PILL [Concomitant]
  4. CARDIZEM CD [Concomitant]
  5. XANAX [Concomitant]

REACTIONS (4)
  - ABASIA [None]
  - ASTHENIA [None]
  - BLINDNESS [None]
  - VISION BLURRED [None]
